FAERS Safety Report 9792887 (Version 1)
Quarter: 2014Q1

REPORT INFORMATION
  Report Type: Spontaneous
  Country: US (occurrence: US)
  Receive Date: 20140102
  Receipt Date: 20140102
  Transmission Date: 20141002
  Serious: No
  Sender: FDA-Public Use
  Company Number: US-SA-2013SA118445

PATIENT
  Age: 53 Year
  Sex: Male

DRUGS (9)
  1. AUBAGIO [Suspect]
     Indication: MULTIPLE SCLEROSIS
     Route: 048
  2. ZOLOFT [Concomitant]
  3. ZOCOR [Concomitant]
  4. AZOR [Concomitant]
  5. BACLOFEN [Concomitant]
  6. PROVIGIL [Concomitant]
  7. CLARITIN [Concomitant]
  8. ADVIL [Concomitant]
  9. TYLENOL [Concomitant]

REACTIONS (2)
  - Hypersensitivity [Recovered/Resolved]
  - Rash [Recovered/Resolved]
